FAERS Safety Report 4521858-1 (Version None)
Quarter: 2004Q4

REPORT INFORMATION
  Report Type: 
  Country: None (occurrence: None)
  Receive Date: 20041206
  Receipt Date: 20041124
  Transmission Date: 20050328
  Serious: Yes (Hospitalization)
  Sender: FDA-Public Use
  Company Number: 2004099560

PATIENT
  Age: 74 Year
  Sex: Female
  Weight: 50.8029 kg

DRUGS (4)
  1. TOLTERODINE L-TARTRATE CAPSULE, PROLONGED RELEASE (TOLTERODINE L-TARTR [Suspect]
     Indication: HYPERTONIC BLADDER
     Dosage: 2 MG (2 MG, QD INTERVAL: EVERY DAY) ORAL;  MG (4 MG, QD INTERVAL: EVERY DAY) ORAL
     Route: 048
     Dates: start: 20030101
  2. TOLTERODINE L-TARTRATE CAPSULE, PROLONGED RELEASE (TOLTERODINE L-TARTR [Suspect]
     Indication: HYPERTONIC BLADDER
     Dosage: 2 MG (2 MG, QD INTERVAL: EVERY DAY) ORAL;  MG (4 MG, QD INTERVAL: EVERY DAY) ORAL
     Route: 048
     Dates: start: 20030301
  3. VALIUM [Concomitant]
  4. IMMODIUM (LOPERAMIDE HYDROCHLORIDE) [Concomitant]

REACTIONS (3)
  - HIP FRACTURE [None]
  - JOINT INJURY [None]
  - PAIN [None]
